FAERS Safety Report 5684425-2 (Version None)
Quarter: 2008Q1

REPORT INFORMATION
  Report Type: 
  Country: None (occurrence: None)
  Receive Date: 20080328
  Receipt Date: 20080318
  Transmission Date: 20080703
  Serious: Yes (Other)
  Sender: FDA-Public Use
  Company Number: FR-GENENTECH-258146

PATIENT
  Sex: Female
  Weight: 63.492 kg

DRUGS (5)
  1. RITUXIMAB [Suspect]
     Indication: B-CELL LYMPHOMA
     Dosage: 375 MG/M2, Q21D
     Route: 042
     Dates: start: 20060202
  2. ONCOVIN [Suspect]
     Indication: B-CELL LYMPHOMA
     Dosage: 100 MG, UNK
     Route: 042
     Dates: start: 20060202
  3. ADRIAMYCIN PFS [Suspect]
     Indication: B-CELL LYMPHOMA
     Dosage: 50 MG, Q21D
     Route: 042
     Dates: start: 20060202
  4. ENDOXAN [Suspect]
     Indication: B-CELL LYMPHOMA
     Dosage: 1280 UNIT, Q21D
     Route: 042
     Dates: start: 20060202
  5. SOLU-MEDROL [Suspect]
     Indication: B-CELL LYMPHOMA
     Dosage: 100 UNIT, Q21D
     Route: 042
     Dates: start: 20060202

REACTIONS (3)
  - CALCINOSIS [None]
  - CARPAL TUNNEL SYNDROME [None]
  - CREST SYNDROME [None]
